FAERS Safety Report 18996433 (Version 3)
Quarter: 2021Q2

REPORT INFORMATION
  Report Type: Other
  Country: US (occurrence: US)
  Receive Date: 20210311
  Receipt Date: 20210504
  Transmission Date: 20210717
  Serious: Yes (Death)
  Sender: FDA-Public Use
  Company Number: US-ROCHE-2788102

PATIENT
  Sex: Male

DRUGS (2)
  1. AVASTIN [Suspect]
     Active Substance: BEVACIZUMAB
     Dosage: INFUSE 500MG INTRAVENOUSLY EVERY 2 WEEKS
     Route: 042
  2. AVASTIN [Suspect]
     Active Substance: BEVACIZUMAB
     Indication: COLORECTAL CANCER METASTATIC
     Dosage: INFUSE 500MG INTRAVENOUSLY EVERY 2 WEEKS?DATE OF TREATMENT: 18/NOV/2020?DATE OF TREATMENT: 02/DEC/20
     Route: 042

REACTIONS (1)
  - Death [Fatal]
